FAERS Safety Report 9307180 (Version 1)
Quarter: 2013Q2

REPORT INFORMATION
  Report Type: Report from Study
  Country: KR (occurrence: KR)
  Receive Date: 20130524
  Receipt Date: 20130524
  Transmission Date: 20140414
  Serious: No
  Sender: FDA-Public Use
  Company Number: PHHY2013KR050967

PATIENT
  Age: 32 Year
  Sex: Female

DRUGS (6)
  1. AMN107 [Suspect]
     Indication: CHRONIC MYELOID LEUKAEMIA
     Dosage: 600 MG, QD
     Route: 048
     Dates: start: 20121012
  2. SERETIDE DISKUS [Concomitant]
     Indication: ASTHMA
     Dates: start: 20121012, end: 20121210
  3. REFRESH PLUS [Concomitant]
     Indication: DRY EYE
     Dates: start: 20121012
  4. REFRESH PLUS [Concomitant]
     Dosage: UNK
  5. OMNARIS [Concomitant]
     Indication: ASTHMA
     Dosage: UNK
     Dates: start: 20121012, end: 20121210
  6. ALLEGRA [Concomitant]
     Indication: ASTHMA
     Dosage: 120 MG, UNK
     Route: 048
     Dates: start: 20121012, end: 20121210

REACTIONS (1)
  - Dry eye [Not Recovered/Not Resolved]
